FAERS Safety Report 7015879-7 (Version None)
Quarter: 2010Q3

REPORT INFORMATION
  Report Type: 
  Country: None (occurrence: None)
  Receive Date: 20100927
  Receipt Date: 20091001
  Transmission Date: 20110219
  Serious: No
  Sender: FDA-Public Use
  Company Number: US-ASTRAZENECA-2009SE17139

PATIENT
  Age: 70 Year
  Sex: Female
  Weight: 88.9 kg

DRUGS (5)
  1. ARIMIDEX [Suspect]
     Indication: BREAST CANCER
     Route: 048
  2. SYNTHROID [Concomitant]
  3. ACIPOHEX [Concomitant]
  4. LIPITOR [Concomitant]
  5. 2 MEDS FOR HER B/P [Concomitant]
     Indication: BLOOD PRESSURE

REACTIONS (2)
  - WEIGHT INCREASED [None]
  - WEIGHT LOSS POOR [None]
